FAERS Safety Report 7542605-5 (Version None)
Quarter: 2011Q2

REPORT INFORMATION
  Report Type: 
  Country: None (occurrence: None)
  Receive Date: 20110613
  Receipt Date: 20110602
  Transmission Date: 20111010
  Serious: Yes (Other)
  Sender: FDA-Public Use
  Company Number: US-ROCHE-781178

PATIENT
  Age: 64 Year
  Sex: Female

DRUGS (3)
  1. GEMZAR [Suspect]
     Indication: BREAST CANCER
     Route: 065
  2. HERCEPTIN [Suspect]
     Indication: BREAST CANCER
     Route: 065
  3. TAXOTERE [Suspect]
     Indication: BREAST CANCER
     Route: 065

REACTIONS (3)
  - RENAL FAILURE [None]
  - HEPATIC FAILURE [None]
  - DISEASE PROGRESSION [None]
